FAERS Safety Report 21338405 (Version 3)
Quarter: 2022Q4

REPORT INFORMATION
  Report Type: Spontaneous
  Country: CA (occurrence: CA)
  Receive Date: 20220915
  Receipt Date: 20221121
  Transmission Date: 20230113
  Serious: Yes (Death, Hospitalization, Other)
  Sender: FDA-Public Use
  Company Number: None

PATIENT
  Sex: Female
  Weight: 58.97 kg

DRUGS (10)
  1. ESCITALOPRAM OXALATE [Suspect]
     Active Substance: ESCITALOPRAM OXALATE
     Indication: Anxiety
     Dosage: 10 MG, BID
     Route: 048
  2. ESCITALOPRAM OXALATE [Suspect]
     Active Substance: ESCITALOPRAM OXALATE
     Dosage: 1 DF, QD
     Route: 048
  3. ESCITALOPRAM OXALATE [Suspect]
     Active Substance: ESCITALOPRAM OXALATE
     Dosage: OVERDOSE
     Route: 048
  4. LYRICA [Suspect]
     Active Substance: PREGABALIN
     Indication: Product used for unknown indication
     Dosage: 1 DF, BID
  5. LYRICA [Suspect]
     Active Substance: PREGABALIN
     Dosage: 1 DF, BID
  6. LORAZEPAM [Concomitant]
     Active Substance: LORAZEPAM
     Indication: Alcohol detoxification
     Dosage: 1 DF
     Route: 060
  7. LORAZEPAM [Concomitant]
     Active Substance: LORAZEPAM
     Indication: Delirium tremens
     Dosage: UNK
     Route: 048
  8. NALTREXONE HYDROCHLORIDE [Concomitant]
     Active Substance: NALTREXONE HYDROCHLORIDE
     Dosage: 1 DF, QD
  9. PANTOPRAZOLE MAGNESIUM [Concomitant]
     Active Substance: PANTOPRAZOLE MAGNESIUM
     Dosage: 1 DF, QD
  10. PREGABALIN [Concomitant]
     Active Substance: PREGABALIN

REACTIONS (5)
  - Alcohol abuse [Recovered/Resolved]
  - Intentional self-injury [Fatal]
  - Suicide attempt [Recovered/Resolved]
  - Completed suicide [Fatal]
  - Overdose [Unknown]
